FAERS Safety Report 12764117 (Version 1)
Quarter: 2016Q3

REPORT INFORMATION
  Report Type: Spontaneous
  Country: US (occurrence: US)
  Receive Date: 20160920
  Receipt Date: 20160920
  Transmission Date: 20161109
  Serious: Yes (Hospitalization)
  Sender: FDA-Public Use
  Company Number: US-RELYPSA-RLY2016002502

PATIENT
  Sex: Male

DRUGS (1)
  1. VELTASSA [Suspect]
     Active Substance: PATIROMER
     Indication: PRODUCT USED FOR UNKNOWN INDICATION
     Dosage: 8.4 G, UNKNOWN
     Route: 065

REACTIONS (4)
  - Nausea [Recovering/Resolving]
  - Gastrointestinal ulcer haemorrhage [Recovered/Resolved]
  - Anaemia [Recovering/Resolving]
  - Constipation [Recovering/Resolving]
